FAERS Safety Report 4354722-1 (Version None)
Quarter: 2004Q2

REPORT INFORMATION
  Report Type: 
  Country: None (occurrence: None)
  Receive Date: 20040503
  Receipt Date: 20040427
  Transmission Date: 20050107
  Serious: Yes (Hospitalization)
  Sender: FDA-Public Use
  Company Number: 2004210743US

PATIENT
  Sex: Male

DRUGS (1)
  1. INSPRA [Suspect]
     Dosage: 25 MG, EVERY OTHER DAY, UNK
     Dates: start: 20040318

REACTIONS (4)
  - ARTERIAL STENOSIS [None]
  - BLOOD POTASSIUM INCREASED [None]
  - DIARRHOEA [None]
  - EJECTION FRACTION DECREASED [None]
